FAERS Safety Report 8233265-9 (Version None)
Quarter: 2012Q1

REPORT INFORMATION
  Report Type: 
  Country: None (occurrence: None)
  Receive Date: 20120326
  Receipt Date: 20120323
  Transmission Date: 20120608
  Serious: No
  Sender: FDA-Public Use
  Company Number: US-PFIZER INC-2012076127

PATIENT
  Sex: Female
  Weight: 63.492 kg

DRUGS (6)
  1. OXYCODONE [Concomitant]
     Indication: FIBROMYALGIA
     Dosage: 5/325 MG, 4X/DAY
  2. CITALOPRAM [Concomitant]
     Indication: FIBROMYALGIA
     Dosage: 40 MG, DAILY
  3. PRAVASTATIN [Concomitant]
     Indication: BLOOD CHOLESTEROL INCREASED
     Dosage: 40 MG, DAILY
  4. LEVOTHYROXINE [Concomitant]
     Indication: HYPOTHYROIDISM
     Dosage: 175 UG, DAILY
  5. CHANTIX [Suspect]
     Indication: SMOKING CESSATION THERAPY
     Dosage: UNK
     Route: 048
     Dates: start: 20110201, end: 20110201
  6. IBUPROFEN [Concomitant]
     Indication: PAIN
     Dosage: 200 MG, AS NEEDED

REACTIONS (4)
  - PALPITATIONS [None]
  - ANXIETY [None]
  - BONE DISORDER [None]
  - ARTHRALGIA [None]
